FAERS Safety Report 9461094 (Version 2)
Quarter: 2013Q3

REPORT INFORMATION
  Report Type: Spontaneous
  Country: JP (occurrence: JP)
  Receive Date: 20130816
  Receipt Date: 20130821
  Transmission Date: 20140515
  Serious: Yes (Other)
  Sender: FDA-Public Use
  Company Number: JP-009507513-1308JPN005905

PATIENT
  Age: 70 Year
  Sex: Male

DRUGS (8)
  1. BRIDION [Suspect]
     Dosage: 200 MG, QD
     Route: 042
     Dates: start: 201308, end: 201308
  2. ESLAX INTRAVENOUS 25MG/2.5ML [Concomitant]
     Dosage: DOSAGE TEXT: DAILY DOSAGE UNKNOWN
     Route: 042
     Dates: start: 201308, end: 201308
  3. PROPOFOL [Concomitant]
     Dosage: DOSAGE TEXT: DAILY DOSAGE UNKNOWN
     Route: 042
     Dates: start: 201308, end: 201308
  4. FENTANYL [Concomitant]
     Dosage: DOSAGE TEXT: DAILY DOSAGE UNKNOWN
     Route: 065
  5. ANAPEINE [Concomitant]
     Dosage: DOSAGE TEXT: DAILY DOSAGE UNKNOWN
     Route: 051
  6. XYLOCAINE [Concomitant]
     Dosage: DOSAGE TEXT: DAILY DOSAGE UNKNOWN
     Route: 065
  7. SEVOFLURANE [Concomitant]
     Dosage: DOSAGE TEXT: DAILY DOSAGE UNKNOWN
     Route: 065
  8. ROPION [Concomitant]
     Dosage: DOSAGE TEXT: DAILY DOSAGE UNKNOWN
     Route: 051

REACTIONS (4)
  - Endotracheal intubation [Unknown]
  - Adverse drug reaction [Unknown]
  - Anaphylactoid reaction [Recovered/Resolved]
  - Extubation [Unknown]
